FAERS Safety Report 5056201-5 (Version None)
Quarter: 2006Q3

REPORT INFORMATION
  Report Type: 
  Country: None (occurrence: None)
  Receive Date: 20060714
  Receipt Date: 20060626
  Transmission Date: 20061208
  Serious: Yes (Other)
  Sender: FDA-Public Use
  Company Number: US200606005591

PATIENT
  Age: 66 Year
  Sex: Female

DRUGS (1)
  1. HUMULIN 70/30 [Suspect]
     Indication: DIABETES MELLITUS NON-INSULIN-DEPENDENT
     Dates: start: 19960101

REACTIONS (3)
  - BLINDNESS [None]
  - BLOOD GLUCOSE INCREASED [None]
  - RENAL IMPAIRMENT [None]
